FAERS Safety Report 5045245-5 (Version None)
Quarter: 2006Q3

REPORT INFORMATION
  Report Type: 
  Country: None (occurrence: None)
  Receive Date: 20060707
  Receipt Date: 20060703
  Transmission Date: 20061208
  Serious: Yes (Life-Threatening)
  Sender: FDA-Public Use
  Company Number: FR-AVENTIS-200612370FR

PATIENT
  Age: 13 Year
  Sex: Female

DRUGS (9)
  1. BIRODOGYL [Suspect]
     Indication: TOOTH ABSCESS
     Dosage: DOSE UNIT: UNITS
     Route: 048
     Dates: start: 20060603, end: 20060607
  2. DOLIPRANE [Suspect]
     Indication: PYREXIA
     Route: 048
     Dates: start: 20060610
  3. IBUPROFEN [Suspect]
     Indication: PYREXIA
     Route: 048
     Dates: start: 20060610
  4. IBUPROFEN [Suspect]
     Indication: RHINITIS
     Route: 048
     Dates: start: 20060610
  5. IBUPROFEN [Suspect]
     Indication: COUGH
     Route: 048
     Dates: start: 20060610
  6. HELICIDINE [Suspect]
     Indication: PYREXIA
     Route: 048
     Dates: start: 20060610
  7. HELICIDINE [Suspect]
     Indication: RHINITIS
     Route: 048
     Dates: start: 20060610
  8. HELICIDINE [Suspect]
     Indication: COUGH
     Route: 048
     Dates: start: 20060610
  9. APRANAX [Suspect]
     Indication: TOOTH ABSCESS
     Route: 048
     Dates: start: 20060603, end: 20060607

REACTIONS (13)
  - ACUTE RESPIRATORY DISTRESS SYNDROME [None]
  - ASTHENIA [None]
  - CANDIDIASIS [None]
  - GENERAL PHYSICAL CONDITION ABNORMAL [None]
  - HYPERHIDROSIS [None]
  - NECK PAIN [None]
  - OLIGURIA [None]
  - PNEUMONIA [None]
  - PYREXIA [None]
  - RESPIRATORY DISTRESS [None]
  - RHINITIS [None]
  - SOMNOLENCE [None]
  - TACHYCARDIA [None]
